FAERS Safety Report 6269984-3 (Version None)
Quarter: 2009Q3

REPORT INFORMATION
  Report Type: 
  Country: None (occurrence: None)
  Receive Date: 20090716
  Receipt Date: 20070802
  Transmission Date: 20100115
  Serious: Yes (Hospitalization, Other)
  Sender: FDA-Public Use
  Company Number: US-ASTRAZENECA-2006UW25301

PATIENT
  Age: 622 Month
  Sex: Female
  Weight: 63.5 kg

DRUGS (50)
  1. SEROQUEL [Suspect]
     Indication: BIPOLAR DISORDER
     Dosage: 200 MG, 400 MG
     Route: 048
     Dates: start: 20000101, end: 20070618
  2. SEROQUEL [Suspect]
     Indication: DEPRESSION
     Dosage: 200 MG, 400 MG
     Route: 048
     Dates: start: 20000101, end: 20070618
  3. SEROQUEL [Suspect]
     Indication: SLEEP DISORDER
     Dosage: 200 MG, 400 MG
     Route: 048
     Dates: start: 20000101, end: 20070618
  4. SEROQUEL [Suspect]
     Dosage: 100-400 MG
     Route: 048
     Dates: start: 20020401
  5. SEROQUEL [Suspect]
     Dosage: 100-400 MG
     Route: 048
     Dates: start: 20020401
  6. SEROQUEL [Suspect]
     Dosage: 100-400 MG
     Route: 048
     Dates: start: 20020401
  7. CLOZARIL [Concomitant]
     Dosage: 2006
  8. RISPERDAL [Concomitant]
     Dosage: 2006
  9. ZYPREXA/SYMBYAX (OLANZAPINE) [Concomitant]
     Dates: start: 20000101, end: 20010101
  10. METHADONE HCL [Concomitant]
     Dates: start: 20050101, end: 20060101
  11. ENDOCET [Concomitant]
     Dates: start: 19990601
  12. SUMYCIN [Concomitant]
     Dates: start: 19990601
  13. CEPHALEXIN [Concomitant]
     Dates: start: 19990825
  14. DIGOXIN [Concomitant]
     Dates: start: 20000308
  15. TRICOR [Concomitant]
     Dates: start: 20000418
  16. AMBIEN [Concomitant]
     Dates: start: 20000418
  17. CLIMARA [Concomitant]
     Dates: start: 20000522
  18. DIAZEPAM [Concomitant]
     Dates: start: 20000810
  19. PERCOCET [Concomitant]
     Dates: start: 20000825
  20. HYDROCODONE/GUAIFENESIN [Concomitant]
     Dates: start: 20010419
  21. ALPRAZOLAM [Concomitant]
     Dates: start: 20011011
  22. LORAZEPAM [Concomitant]
     Dates: start: 20021115
  23. TRAMADOL HCL [Concomitant]
     Dates: start: 20021127
  24. NEURONTIN [Concomitant]
     Dates: start: 20021209
  25. ULTRACET [Concomitant]
     Dates: start: 20040325
  26. ACETAMINOPHEN W/ CODEINE TAB [Concomitant]
     Dates: start: 20040524
  27. PENICILLIN VK [Concomitant]
     Dates: start: 20040831
  28. HYDROCODONE BITARTRATE + ACETAMINOPHEN [Concomitant]
     Dates: start: 20040907
  29. PROPRANOLOL HYDROCHLORIDE [Concomitant]
     Dates: start: 20040907
  30. PHENYTOIN [Concomitant]
     Dates: start: 20040907
  31. LEXAPRO [Concomitant]
     Dates: start: 20040927
  32. BEXTRA [Concomitant]
     Dates: start: 20040927
  33. DEPAKOTE [Concomitant]
     Dates: start: 20040927
  34. CYCLOBENZAPRINE [Concomitant]
     Dates: start: 20041008
  35. AMITRIPTYLINE [Concomitant]
     Dates: start: 20050519
  36. GABAPENTIN [Concomitant]
     Dates: start: 20050617
  37. CLONIDINE [Concomitant]
     Dates: start: 20050725
  38. ZOLOFT [Concomitant]
     Dates: start: 20050819
  39. DIOVAN HCT [Concomitant]
     Dates: start: 20050819
  40. VYTORIN [Concomitant]
     Dates: start: 20060209
  41. ATENOLOL [Concomitant]
     Dates: start: 20060602
  42. LIPITOR [Concomitant]
     Dates: start: 20060622
  43. NITROGLYN 2% OINTMENT [Concomitant]
  44. METOPROLOL TARTRATE [Concomitant]
  45. LISINOPRIL [Concomitant]
  46. PROTONIX [Concomitant]
  47. ZOCOR [Concomitant]
  48. OXYCODONE [Concomitant]
  49. RESTORIL [Concomitant]
  50. LIBRIUM [Concomitant]

REACTIONS (13)
  - ANGINA PECTORIS [None]
  - BACK PAIN [None]
  - BLOOD PRESSURE [None]
  - BLOOD TRIGLYCERIDES INCREASED [None]
  - CARDIAC DISORDER [None]
  - CHEST PAIN [None]
  - DYSLIPIDAEMIA [None]
  - HYPERGLYCAEMIA [None]
  - HYPERPROLACTINAEMIA [None]
  - MUSCULOSKELETAL PAIN [None]
  - OEDEMA PERIPHERAL [None]
  - SUPRAVENTRICULAR TACHYCARDIA [None]
  - TACHYCARDIA [None]
